FAERS Safety Report 4461185-4 (Version None)
Quarter: 2004Q3

REPORT INFORMATION
  Report Type: 
  Country: None (occurrence: None)
  Receive Date: 20040923
  Receipt Date: 20040916
  Transmission Date: 20050211
  Serious: Yes (Other)
  Sender: FDA-Public Use
  Company Number: 2004234044US

PATIENT
  Age: 83 Year
  Sex: Male
  Weight: 70.3 kg

DRUGS (5)
  1. DETROL LA [Suspect]
     Indication: BLADDER DISORDER
     Dosage: 4 MG, QD, ORAL
     Route: 048
     Dates: start: 20040101
  2. BENICAR [Concomitant]
  3. ATENOLOL [Concomitant]
  4. LIPITOR [Concomitant]
  5. ASPIRIN [Concomitant]

REACTIONS (11)
  - BLADDER PAIN [None]
  - CONSTIPATION [None]
  - DRUG EFFECT DECREASED [None]
  - DYSURIA [None]
  - POST PROCEDURAL COMPLICATION [None]
  - POST PROCEDURAL PAIN [None]
  - PROSTATIC PAIN [None]
  - RECTAL HAEMORRHAGE [None]
  - UNEVALUABLE EVENT [None]
  - URINARY BLADDER ATROPHY [None]
  - URINARY INCONTINENCE [None]
